FAERS Safety Report 6128733-X (Version None)
Quarter: 2009Q1

REPORT INFORMATION
  Report Type: 
  Country: None (occurrence: None)
  Receive Date: 20090319
  Receipt Date: 20090306
  Transmission Date: 20090719
  Serious: Yes (Other)
  Sender: FDA-Public Use
  Company Number: 2009EU000056

PATIENT
  Age: 81 Year
  Sex: Female
  Weight: 82 kg

DRUGS (6)
  1. VESICARE [Suspect]
     Indication: INCONTINENCE
     Dosage: 1 DF, ORAL
     Route: 048
  2. BETAHISTINE (BETAHISTINE HYDROCHLORIDE) [Concomitant]
  3. CINNARIZINE (CINNARIZINE) [Concomitant]
  4. CORUNO (MOLSIDOMINE) [Concomitant]
  5. GLICLAZIDE (GLICLAZIDE) [Concomitant]
  6. ASPIRIN [Concomitant]

REACTIONS (1)
  - ANURIA [None]
